FAERS Safety Report 18428045 (Version 2)
Quarter: 2020Q4

REPORT INFORMATION
  Report Type: Spontaneous
  Country: US (occurrence: US)
  Receive Date: 20201026
  Receipt Date: 20201124
  Transmission Date: 20210114
  Serious: Yes (Hospitalization)
  Sender: FDA-Public Use
  Company Number: US-UNITED THERAPEUTICS-UNT-2020-016146

PATIENT
  Age: 72 Year
  Sex: Female

DRUGS (2)
  1. TYVASO [Suspect]
     Active Substance: TREPROSTINIL
     Indication: PULMONARY ARTERIAL HYPERTENSION
     Dosage: UNK
     Dates: start: 20180416
  2. TYVASO [Suspect]
     Active Substance: TREPROSTINIL
     Dosage: 108 ?G, QID

REACTIONS (2)
  - Off label use [Unknown]
  - Infection [Recovered/Resolved]

NARRATIVE: CASE EVENT DATE: 202010
